FAERS Safety Report 18675488 (Version 1)
Quarter: 2020Q4

REPORT INFORMATION
  Report Type: Spontaneous
  Country: CN (occurrence: CN)
  Receive Date: 20201229
  Receipt Date: 20201229
  Transmission Date: 20210114
  Serious: Yes (Life-Threatening, Other)
  Sender: FDA-Public Use
  Company Number: NVSC2020CN342109

PATIENT
  Age: 53 Year
  Sex: Female

DRUGS (1)
  1. SIPONIMOD [Suspect]
     Active Substance: SIPONIMOD
     Indication: MULTIPLE SCLEROSIS
     Dosage: 2 MG, QD
     Route: 048
     Dates: start: 20201126

REACTIONS (3)
  - Pulmonary embolism [Unknown]
  - Generalised oedema [Unknown]
  - Infection [Unknown]

NARRATIVE: CASE EVENT DATE: 20201223
